FAERS Safety Report 4830045-9 (Version None)
Quarter: 2005Q4

REPORT INFORMATION
  Report Type: 
  Country: None (occurrence: None)
  Receive Date: 20051115
  Receipt Date: 20051115
  Transmission Date: 20060501
  Serious: Yes (Hospitalization)
  Sender: FDA-Public Use
  Company Number: None

PATIENT
  Age: 75 Year
  Sex: Male
  Weight: 119.7496 kg

DRUGS (2)
  1. GLYBURIDE [Suspect]
     Indication: DIABETES MELLITUS
     Dosage: 5 MG BID PO
     Route: 048
     Dates: start: 20051107, end: 20051114
  2. ROSIGLITAZONE  8 MG [Suspect]
     Indication: DIABETES MELLITUS
     Dosage: 8 MG DAILY PO
     Route: 048
     Dates: start: 20031217, end: 20051108

REACTIONS (9)
  - COMMUNICATION DISORDER [None]
  - CONFUSIONAL STATE [None]
  - DIZZINESS [None]
  - DYSSTASIA [None]
  - HYPOGLYCAEMIA [None]
  - IATROGENIC INJURY [None]
  - OEDEMA PERIPHERAL [None]
  - PYURIA [None]
  - WEIGHT INCREASED [None]
